FAERS Safety Report 6523177-0 (Version None)
Quarter: 2009Q4

REPORT INFORMATION
  Report Type: 
  Country: None (occurrence: None)
  Receive Date: 20091222
  Receipt Date: 20091207
  Transmission Date: 20100525
  Serious: Yes (Hospitalization)
  Sender: FDA-Public Use
  Company Number: 2009-04764

PATIENT
  Age: 75 Year
  Sex: Female

DRUGS (3)
  1. VELCADE [Suspect]
     Indication: MULTIPLE MYELOMA
     Dosage: 2.2 MG, CYCLIC, INTRAVENOUS
     Route: 042
     Dates: start: 20091002, end: 20091012
  2. DEXAMETHASONE TAB [Suspect]
     Indication: MULTIPLE MYELOMA
     Dosage: 20 MG, ORAL
     Route: 048
     Dates: start: 20091002, end: 20091013
  3. DASATINIB (DASATINIB) [Suspect]
     Indication: MULTIPLE MYELOMA
     Dosage: 140 MG
     Dates: start: 20091002, end: 20091024

REACTIONS (4)
  - ANAEMIA [None]
  - HAEMORRHAGE URINARY TRACT [None]
  - HAEMORRHOIDAL HAEMORRHAGE [None]
  - THROMBOCYTOPENIA [None]
